FAERS Safety Report 25962450 (Version 1)
Quarter: 2025Q4

REPORT INFORMATION
  Report Type: Spontaneous
  Country: US (occurrence: US)
  Receive Date: 20251027
  Receipt Date: 20251027
  Transmission Date: 20260117
  Serious: No
  Sender: MYLAN
  Company Number: US-MYLANLABS-2025M1087649

PATIENT
  Sex: Female

DRUGS (1)
  1. ESTRADIOL TRANSDERMAL SYSTEM [Suspect]
     Active Substance: ESTRADIOL
     Indication: Product used for unknown indication
     Dosage: 0.0375 MILLIGRAM, QD (PER DAY, ONCE WEEKLY)

REACTIONS (3)
  - Application site pruritus [Unknown]
  - Application site urticaria [Not Recovered/Not Resolved]
  - Application site pain [Unknown]

NARRATIVE: CASE EVENT DATE: 20251001
